FAERS Safety Report 5124737-4 (Version None)
Quarter: 2006Q4

REPORT INFORMATION
  Report Type: 
  Country: None (occurrence: None)
  Receive Date: 20061006
  Receipt Date: 20061006
  Transmission Date: 20070319
  Serious: Yes (Death)
  Sender: FDA-Public Use
  Company Number: None

PATIENT
  Age: 15 Year
  Sex: Female

DRUGS (2)
  1. LEXAPRO [Suspect]
     Indication: DEPRESSION
     Route: 065
  2. SEROQUEL [Suspect]
     Route: 065

REACTIONS (7)
  - APNOEA [None]
  - CARDIO-RESPIRATORY ARREST [None]
  - INJURY ASPHYXIATION [None]
  - PETECHIAE [None]
  - PULSE ABSENT [None]
  - PUPIL FIXED [None]
  - SKIN DISCOLOURATION [None]
